FAERS Safety Report 15238236 (Version 1)
Quarter: 2018Q3

REPORT INFORMATION
  Report Type: Spontaneous
  Country: ZA (occurrence: ZA)
  Receive Date: 20180803
  Receipt Date: 20180803
  Transmission Date: 20181010
  Serious: Yes (Other)
  Sender: FDA-Public Use
  Company Number: ZA-PFIZER INC-2018309134

PATIENT
  Sex: Female
  Weight: 83 kg

DRUGS (2)
  1. METHOTREXATE. [Suspect]
     Active Substance: METHOTREXATE
     Dosage: 20 MG, UNK
     Dates: start: 2016
  2. SALAZOPYRIN [Suspect]
     Active Substance: SULFASALAZINE
     Dosage: UNK, 2X/DAY
     Dates: start: 201804

REACTIONS (5)
  - Joint effusion [Unknown]
  - Left ventricular hypertrophy [Unknown]
  - Deformity [Unknown]
  - Rheumatoid arthritis [Unknown]
  - Drug ineffective [Unknown]
